FAERS Safety Report 18109455 (Version 1)
Quarter: 2020Q3

REPORT INFORMATION
  Report Type: Spontaneous
  Country: US (occurrence: US)
  Receive Date: 20200804
  Receipt Date: 20200804
  Transmission Date: 20201103
  Serious: Yes (Hospitalization)
  Sender: FDA-Public Use
  Company Number: None

PATIENT
  Age: 74 Year
  Sex: Male
  Weight: 116 kg

DRUGS (3)
  1. REMDESIVIR. [Suspect]
     Active Substance: REMDESIVIR
     Indication: COVID-19
     Route: 041
     Dates: start: 20200625, end: 20200627
  2. REMDESIVIR. [Concomitant]
     Active Substance: REMDESIVIR
  3. REMDESIVIR. [Suspect]
     Active Substance: REMDESIVIR
     Route: 041

REACTIONS (1)
  - Prerenal failure [None]

NARRATIVE: CASE EVENT DATE: 20200627
